FAERS Safety Report 24335545 (Version 1)
Quarter: 2024Q3

REPORT INFORMATION
  Report Type: Spontaneous
  Country: NL (occurrence: NL)
  Receive Date: 20240919
  Receipt Date: 20240919
  Transmission Date: 20241016
  Serious: Yes (Hospitalization)
  Sender: STRIDES
  Company Number: NL-STRIDES ARCOLAB LIMITED-2024SP011759

PATIENT
  Age: 23 Year
  Sex: Male

DRUGS (1)
  1. HALOPERIDOL [Suspect]
     Active Substance: HALOPERIDOL
     Indication: Product used for unknown indication
     Dosage: UNK (INGESTED THREE TO FIVE TABLETS)
     Route: 048

REACTIONS (18)
  - Metabolic acidosis [Recovered/Resolved]
  - Depressed level of consciousness [Recovered/Resolved]
  - Hyperhidrosis [Recovered/Resolved]
  - Muscle tightness [Recovered/Resolved]
  - Tachypnoea [Recovered/Resolved]
  - Sinus tachycardia [Recovered/Resolved]
  - Cogwheel rigidity [Recovered/Resolved]
  - Tachycardia [Recovered/Resolved]
  - Lethargy [Recovered/Resolved]
  - Renal failure [Recovered/Resolved]
  - Dystonia [Recovered/Resolved]
  - Liver function test abnormal [Recovered/Resolved]
  - Neuroleptic malignant syndrome [Recovered/Resolved]
  - Tremor [Recovered/Resolved]
  - Hypotension [Recovered/Resolved]
  - Muscle rigidity [Recovered/Resolved]
  - Intentional product misuse [Unknown]
  - Overdose [Unknown]
